FAERS Safety Report 11723071 (Version 2)
Quarter: 2015Q4

REPORT INFORMATION
  Report Type: Spontaneous
  Country: NO (occurrence: NO)
  Receive Date: 20151111
  Receipt Date: 20151221
  Transmission Date: 20160304
  Serious: Yes (Other)
  Sender: FDA-Public Use
  Company Number: PHHY2015NO145652

PATIENT
  Sex: Male

DRUGS (1)
  1. OTRIVIN [Suspect]
     Active Substance: XYLOMETAZOLINE
     Indication: NASAL CONGESTION
     Dosage: 4 TO 5 TIMES DAILY
     Route: 065

REACTIONS (4)
  - Drug dependence [Recovered/Resolved]
  - Inappropriate schedule of drug administration [Unknown]
  - Nasal congestion [Unknown]
  - Incorrect drug administration duration [Unknown]
